FAERS Safety Report 19455462 (Version 1)
Quarter: 2021Q2

REPORT INFORMATION
  Report Type: Spontaneous
  Country: US (occurrence: US)
  Receive Date: 20210623
  Receipt Date: 20210623
  Transmission Date: 20210717
  Serious: No
  Sender: FDA-Public Use
  Company Number: US-PURDUE-USA-2021-0269542

PATIENT
  Sex: Female

DRUGS (1)
  1. THEOPHYLLINE (040086, 087571 RHODES) [Suspect]
     Active Substance: THEOPHYLLINE ANHYDROUS
     Indication: ASTHMA
     Route: 048

REACTIONS (4)
  - Drug ineffective [Unknown]
  - Asthma [Unknown]
  - Chest pain [Unknown]
  - Heart rate increased [Unknown]
